FAERS Safety Report 12710128 (Version 1)
Quarter: 2016Q3

REPORT INFORMATION
  Report Type: Spontaneous
  Country: AU (occurrence: None)
  Receive Date: 20160901
  Receipt Date: 20160901
  Transmission Date: 20161109
  Serious: Yes (Other)
  Sender: FDA-Public Use
  Company Number: AU2016K4323LIT

PATIENT
  Age: 33 Year
  Sex: Male

DRUGS (8)
  1. PROPYLTHIOURACIL. [Suspect]
     Active Substance: PROPYLTHIOURACIL
  2. WARFARIN [Suspect]
     Active Substance: WARFARIN
  3. BISOPROLOL WORLD (BISOPROLOL FUMARATE) UNKNOWN [Suspect]
     Active Substance: BISOPROLOL FUMARATE
  4. ALPRAZOLAM WORLD (ALPRAZOLAM) [Suspect]
     Active Substance: ALPRAZOLAM
  5. CANDESARTAN WORLD (CANDESARTAN) [Suspect]
     Active Substance: CANDESARTAN
  6. FUROSEMIDE. [Suspect]
     Active Substance: FUROSEMIDE
  7. SPIRONOLACTONE. [Suspect]
     Active Substance: SPIRONOLACTONE
  8. LANSOPRAZOLE WORLD (LANSOPRAZOLE) UNKNOWN [Suspect]
     Active Substance: LANSOPRAZOLE

REACTIONS (1)
  - Rhabdomyolysis [None]
